FAERS Safety Report 15166231 (Version 1)
Quarter: 2018Q3

REPORT INFORMATION
  Report Type: Spontaneous
  Country: US (occurrence: US)
  Receive Date: 20180719
  Receipt Date: 20180719
  Transmission Date: 20181010
  Serious: No
  Sender: FDA-Public Use
  Company Number: US-OTSUKA-2018_009527

PATIENT
  Age: 45 Year
  Sex: Male

DRUGS (1)
  1. REXULTI [Suspect]
     Active Substance: BREXPIPRAZOLE
     Indication: BIPOLAR I DISORDER
     Dosage: UNK
     Route: 065
     Dates: start: 2018

REACTIONS (5)
  - Panic attack [Unknown]
  - Drug effective for unapproved indication [Unknown]
  - Laziness [Recovered/Resolved]
  - Fatigue [Unknown]
  - Aggression [Recovered/Resolved]
